FAERS Safety Report 4471706-3 (Version None)
Quarter: 2004Q4

REPORT INFORMATION
  Report Type: 
  Country: None (occurrence: None)
  Receive Date: 20041006
  Receipt Date: 20040920
  Transmission Date: 20050328
  Serious: Yes (Hospitalization, Other)
  Sender: FDA-Public Use
  Company Number: 2004US000821

PATIENT
  Age: 6 Month
  Sex: Female

DRUGS (1)
  1. PROTOPIC [Suspect]
     Indication: ECZEMA
     Dosage: BID, PRN, TOPICAL
     Route: 061
     Dates: start: 20040503, end: 20040713

REACTIONS (3)
  - CONVULSION [None]
  - MENINGOCOCCAL SEPSIS [None]
  - SEPSIS [None]
